FAERS Safety Report 23400800 (Version 1)
Quarter: 2024Q1

REPORT INFORMATION
  Report Type: Report from Study
  Country: US (occurrence: US)
  Receive Date: 20240115
  Receipt Date: 20240115
  Transmission Date: 20240410
  Serious: Yes (Other)
  Sender: FDA-Public Use
  Company Number: US-JNJFOC-20230634587

PATIENT

DRUGS (5)
  1. DARATUMUMAB [Suspect]
     Active Substance: DARATUMUMAB
     Indication: Plasma cell myeloma
     Dosage: 21-D CYCLES* 3 (C1-3, C4D1)
     Route: 042
  2. BORTEZOMIB [Suspect]
     Active Substance: BORTEZOMIB
     Indication: Plasma cell myeloma
     Route: 058
  3. DEXAMETHASONE [Suspect]
     Active Substance: DEXAMETHASONE
     Indication: Plasma cell myeloma
     Dosage: D1-4 (C1 ONLY, D1 ONLY C2-4), 8, AND 15
     Route: 065
  4. DEXAMETHASONE [Suspect]
     Active Substance: DEXAMETHASONE
     Dosage: REDUCED TO 20MG AT C2 FOR GREATER THAN OR EQUAL TO 75 YRS.
     Route: 065
  5. LENALIDOMIDE [Suspect]
     Active Substance: LENALIDOMIDE
     Indication: Plasma cell myeloma
     Dosage: C2?25MG IF CRCL GREATER THAN OR EQUAL TO 30 ML/MIN
     Route: 065

REACTIONS (17)
  - Neuropathy peripheral [Unknown]
  - Hypokalaemia [Unknown]
  - Neutropenia [Unknown]
  - Thrombocytopenia [Unknown]
  - Hypophosphataemia [Unknown]
  - Hyponatraemia [Unknown]
  - Hyperglycaemia [Unknown]
  - Rash [Unknown]
  - Hypertransaminasaemia [Unknown]
  - Anaemia [Unknown]
  - Lymphopenia [Unknown]
  - Fatigue [Unknown]
  - Infusion related reaction [Unknown]
  - Asthenia [Unknown]
  - Dyspnoea [Unknown]
  - Pyrexia [Unknown]
  - Oedema [Unknown]
